FAERS Safety Report 5919250-8 (Version None)
Quarter: 2008Q4

REPORT INFORMATION
  Report Type: 
  Country: None (occurrence: None)
  Receive Date: 20081015
  Receipt Date: 20081003
  Transmission Date: 20090506
  Serious: Yes (Other)
  Sender: FDA-Public Use
  Company Number: PHBS2008US05911

PATIENT

DRUGS (1)
  1. ZOLEDRONIC ACID [Suspect]
     Indication: HYPERGAMMAGLOBULINAEMIA BENIGN MONOCLONAL
     Dosage: 4 MG, ON DAY 0 AND REPEATED AT 6, 12 MO
     Route: 042

REACTIONS (1)
  - PRIMARY AMYLOIDOSIS [None]
